FAERS Safety Report 22168360 (Version 1)
Quarter: 2023Q2

REPORT INFORMATION
  Report Type: Spontaneous
  Country: US (occurrence: None)
  Receive Date: 20230403
  Receipt Date: 20230403
  Transmission Date: 20230722
  Serious: No
  Sender: FDA-Public Use
  Company Number: None

PATIENT
  Age: 51 Year
  Sex: Female
  Weight: 80.69 kg

DRUGS (12)
  1. CAPECITABINE [Suspect]
     Active Substance: CAPECITABINE
     Indication: Cholangiocarcinoma
     Dosage: 1500MG TWICE A DAY ORAL?
     Route: 048
  2. ATIVAN [Concomitant]
  3. CYCLOBENZAPRINE [Concomitant]
  4. DOCUSATE SODIUM [Concomitant]
  5. Gabapentin Gas-X Extra Strength [Concomitant]
  6. medical chocolate [Concomitant]
  7. MELATONIN [Concomitant]
  8. oxycodone-Acetaminophen [Concomitant]
  9. PEPCID AC [Concomitant]
     Active Substance: FAMOTIDINE
  10. PROCHLORPERAZINE MALEATE [Concomitant]
     Active Substance: PROCHLORPERAZINE MALEATE
  11. VENLAFAXINE [Concomitant]
  12. ZOFRAN [Concomitant]
     Active Substance: ONDANSETRON HYDROCHLORIDE

REACTIONS (1)
  - Diverticulitis [None]
